FAERS Safety Report 6354234-X (Version None)
Quarter: 2009Q3

REPORT INFORMATION
  Report Type: 
  Country: None (occurrence: None)
  Receive Date: 20090909
  Receipt Date: 20090825
  Transmission Date: 20100115
  Serious: Yes (Other)
  Sender: FDA-Public Use
  Company Number: 2009AL001459

PATIENT
  Age: 82 Year
  Sex: Female

DRUGS (13)
  1. DIGOXIN [Suspect]
     Dosage: PO
     Route: 048
  2. ATENOLOL [Concomitant]
  3. COUMADIN [Concomitant]
  4. CYMBALTA [Concomitant]
  5. FAMOTIDINE [Concomitant]
  6. ISOSORBIDE MONONITRATE [Concomitant]
  7. LASIX [Concomitant]
  8. LISINOPRIL [Concomitant]
  9. ENDOCERT [Concomitant]
  10. REQUIP [Concomitant]
  11. ALDACTONE [Concomitant]
  12. VICODIN [Concomitant]
  13. VYTORIN [Concomitant]

REACTIONS (13)
  - ANHEDONIA [None]
  - ANXIETY [None]
  - BRADYCARDIA [None]
  - CONVULSION [None]
  - DIARRHOEA [None]
  - FATIGUE [None]
  - HEART RATE IRREGULAR [None]
  - INJURY [None]
  - NAUSEA [None]
  - PALPITATIONS [None]
  - SICK SINUS SYNDROME [None]
  - THERAPEUTIC AGENT TOXICITY [None]
  - VISUAL IMPAIRMENT [None]
